FAERS Safety Report 26117169 (Version 2)
Quarter: 2025Q4

REPORT INFORMATION
  Report Type: Spontaneous
  Country: US (occurrence: US)
  Receive Date: 20251203
  Receipt Date: 20251208
  Transmission Date: 20260118
  Serious: No
  Sender: ABBVIE
  Company Number: US-ABBVIE-6571677

PATIENT
  Age: 57 Year
  Sex: Female

DRUGS (1)
  1. SYNTHROID [Suspect]
     Active Substance: LEVOTHYROXINE SODIUM
     Indication: Autoimmune thyroiditis
     Dosage: FORM STRENGTH: 200 MICROGRAM
     Route: 048
     Dates: start: 2025

REACTIONS (6)
  - Fluid retention [Not Recovered/Not Resolved]
  - Alopecia [Unknown]
  - Tendon pain [Unknown]
  - Drug ineffective [Unknown]
  - Product quality issue [Unknown]
  - Muscle disorder [Unknown]

NARRATIVE: CASE EVENT DATE: 20250101
